FAERS Safety Report 10884417 (Version 2)
Quarter: 2015Q2

REPORT INFORMATION
  Report Type: Spontaneous
  Country: IT (occurrence: IT)
  Receive Date: 20150304
  Receipt Date: 20150508
  Transmission Date: 20150821
  Serious: Yes (Hospitalization)
  Sender: FDA-Public Use
  Company Number: IT-ROCHE-1547064

PATIENT
  Age: 65 Year
  Sex: Male

DRUGS (4)
  1. CLAVULIN [Suspect]
     Active Substance: AMOXICILLIN\CLAVULANIC ACID
     Indication: RESPIRATORY DISORDER
     Dosage: FILM COATED TABLET.
     Route: 048
     Dates: start: 20150213, end: 20150215
  2. BLOPRESS [Concomitant]
     Active Substance: CANDESARTAN CILEXETIL
     Dosage: 7 TABLETS 16 MG
     Route: 048
     Dates: start: 20110201, end: 20150222
  3. BENTELAN [Suspect]
     Active Substance: BETAMETHASONE SODIUM PHOSPHATE
     Indication: PRODUCT USED FOR UNKNOWN INDICATION
     Dosage: 1.5 MG/2 ML SOLUTION FOR INJECTION
     Route: 030
     Dates: start: 20150216, end: 20150221
  4. ROCEFIN [Suspect]
     Active Substance: CEFTRIAXONE SODIUM
     Indication: PRODUCT USED FOR UNKNOWN INDICATION
     Dosage: 1 G/3.5 ML POWDER AND SOLVENT FOR SOLUTION FOR INJ
     Route: 030
     Dates: start: 20150216, end: 20150221

REACTIONS (5)
  - Epistaxis [Recovering/Resolving]
  - Haematuria [Recovering/Resolving]
  - Petechiae [Recovering/Resolving]
  - Salivary hypersecretion [Recovering/Resolving]
  - Thrombocytopenia [Recovering/Resolving]

NARRATIVE: CASE EVENT DATE: 20150216
